FAERS Safety Report 4452965-X (Version None)
Quarter: 2004Q3

REPORT INFORMATION
  Report Type: 
  Country: None (occurrence: None)
  Receive Date: 20040916
  Receipt Date: 20040902
  Transmission Date: 20050211
  Serious: Yes (Hospitalization, Other)
  Sender: FDA-Public Use
  Company Number: 2004062349

PATIENT
  Age: 45 Year
  Sex: Male

DRUGS (9)
  1. GEODON [Suspect]
     Indication: AGGRESSION
     Dosage: 80 MG (40 MG, 2 IN 1 D), ORAL
     Route: 048
     Dates: start: 20040618
  2. GEODON [Suspect]
     Indication: ATTENTION DEFICIT/HYPERACTIVITY DISORDER
     Dosage: 80 MG (40 MG, 2 IN 1 D), ORAL
     Route: 048
     Dates: start: 20040618
  3. GEODON [Suspect]
     Indication: DEPRESSION
     Dosage: 80 MG (40 MG, 2 IN 1 D), ORAL
     Route: 048
     Dates: start: 20040618
  4. GEODON [Suspect]
     Indication: POST-TRAUMATIC STRESS DISORDER
     Dosage: 80 MG (40 MG, 2 IN 1 D), ORAL
     Route: 048
     Dates: start: 20040618
  5. PAROXETINE HCL [Concomitant]
  6. ZOLPIDEM TARTRATE [Concomitant]
  7. ARIPIPRAZOLE (ARIPIPRAZOLE) [Concomitant]
  8. COCAINE (COCAINE) [Concomitant]
  9. OXYCOCET (OXYCODONE HYDROCHLORIDE, PARACETAMOL) [Concomitant]

REACTIONS (5)
  - AKATHISIA [None]
  - AMNESIA [None]
  - DRUG EFFECT DECREASED [None]
  - DYSARTHRIA [None]
  - DYSTONIA [None]
